FAERS Safety Report 20768295 (Version 1)
Quarter: 2022Q2

REPORT INFORMATION
  Report Type: Spontaneous
  Country: US (occurrence: None)
  Receive Date: 20220428
  Receipt Date: 20220428
  Transmission Date: 20220721
  Serious: No
  Sender: FDA-Public Use
  Company Number: None

PATIENT
  Age: 55 Year
  Sex: Female
  Weight: 117.5 kg

DRUGS (21)
  1. VOTRIENT [Suspect]
     Active Substance: PAZOPANIB HYDROCHLORIDE
     Dosage: FREQUENCY : DAILY;?
     Route: 048
  2. LOSARTAN POTASSIUM [Concomitant]
     Active Substance: LOSARTAN POTASSIUM
  3. METFORMIN HCL [Concomitant]
  4. JANUVIA [Concomitant]
  5. GLIMEPIRIDE [Concomitant]
  6. HYDROCHLOROTHIAZIDE [Concomitant]
  7. TRAMADOL HCL [Concomitant]
  8. ATORVASTATIN CALCIUM [Concomitant]
  9. HYDROXYZINE HYDROCHLORIDE [Concomitant]
     Active Substance: HYDROXYZINE HYDROCHLORIDE
  10. CALTRATE WITH VITAMIN D [Concomitant]
     Active Substance: CALCIUM CARBONATE\CHOLECALCIFEROL
  11. RA VITAMIN D-3 [Concomitant]
  12. VITAMIN C [Concomitant]
     Active Substance: ASCORBIC ACID
  13. SM IRON [Concomitant]
  14. ZINC [Concomitant]
     Active Substance: ZINC
  15. KP VITAMIN B-12 [Concomitant]
  16. LORATADINE [Concomitant]
  17. GAS-X [Concomitant]
     Active Substance: DIMETHICONE
  18. MELATONIN [Concomitant]
     Active Substance: MELATONIN
  19. MESALAMINE [Concomitant]
     Active Substance: MESALAMINE
  20. TRIAMCINOLONE ACETONIDE EXTERNAL CR [Concomitant]
  21. ZOFRAN [Concomitant]

REACTIONS (1)
  - Cerebrovascular accident [None]

NARRATIVE: CASE EVENT DATE: 20220423
